FAERS Safety Report 6153851-X (Version None)
Quarter: 2009Q2

REPORT INFORMATION
  Report Type: 
  Country: None (occurrence: None)
  Receive Date: 20090414
  Receipt Date: 20090401
  Transmission Date: 20091009
  Serious: Yes (Other)
  Sender: FDA-Public Use
  Company Number: BR-RANBAXY-2009RR-23204

PATIENT
  Age: 32 Year
  Sex: Male

DRUGS (5)
  1. ZIDOVUDINE [Suspect]
  2. LAMIVUDINE [Suspect]
  3. DEXAMETHASONE 4MG TAB [Suspect]
  4. RANCEPINE [Suspect]
  5. LOPINAVIR AND RITONAVIR [Suspect]

REACTIONS (1)
  - ASPERGILLOSIS [None]
